FAERS Safety Report 23600943 (Version 1)
Quarter: 2024Q1

REPORT INFORMATION
  Report Type: Spontaneous
  Country: NZ (occurrence: NZ)
  Receive Date: 20240306
  Receipt Date: 20240306
  Transmission Date: 20240410
  Serious: Yes (Other)
  Sender: FDA-Public Use
  Company Number: NZ-Atnahs Limited-ATNAHS20240300624

PATIENT
  Sex: Male

DRUGS (2)
  1. NAPROXEN [Suspect]
     Active Substance: NAPROXEN
     Indication: Product used for unknown indication
  2. PREGABALIN [Suspect]
     Active Substance: PREGABALIN
     Indication: Product used for unknown indication

REACTIONS (5)
  - Circulatory collapse [Unknown]
  - Loss of consciousness [Unknown]
  - Rash pruritic [Unknown]
  - Rash [Unknown]
  - Vomiting [Unknown]
